FAERS Safety Report 11386015 (Version 1)
Quarter: 2015Q3

REPORT INFORMATION
  Report Type: Spontaneous
  Country: US (occurrence: None)
  Receive Date: 20150813
  Receipt Date: 20150813
  Transmission Date: 20151125
  Serious: Yes (Disabling)
  Sender: FDA-Public Use
  Company Number: None

PATIENT
  Age: 63 Year
  Sex: Female
  Weight: 65 kg

DRUGS (16)
  1. SUMATRIPTAN SUCCINATE. [Concomitant]
     Active Substance: SUMATRIPTAN SUCCINATE
  2. PROCHLORPERAZINE. [Concomitant]
     Active Substance: PROCHLORPERAZINE
  3. PROPANOLOL [Concomitant]
     Active Substance: PROPRANOLOL HYDROCHLORIDE
  4. XGEVA [Concomitant]
     Active Substance: DENOSUMAB
  5. ACETAMINOPHEN. [Concomitant]
     Active Substance: ACETAMINOPHEN
  6. VITAMIN D3 [Concomitant]
     Active Substance: CHOLECALCIFEROL
  7. CREST PRO-HEALTH CLINICAL [Concomitant]
     Active Substance: CETYLPYRIDINIUM CHLORIDE
  8. CABOZANTIINB 80 MG, 20 MG EXELIXIS [Suspect]
     Active Substance: CABOZANTINIB
     Indication: BREAST CANCER STAGE I
     Dosage: 140 MG (ONE 80MG + THREE 20MG)
     Route: 048
     Dates: start: 20150521, end: 20150722
  9. CALCIUM [Concomitant]
     Active Substance: CALCIUM
  10. BENADRYL [Concomitant]
     Active Substance: DIPHENHYDRAMINE HYDROCHLORIDE
  11. CARVEDILOL. [Concomitant]
     Active Substance: CARVEDILOL
  12. OMEPRAZOLE. [Concomitant]
     Active Substance: OMEPRAZOLE
  13. TRASTUZUMAB [Concomitant]
     Active Substance: TRASTUZUMAB
  14. EMLA [Concomitant]
     Active Substance: LIDOCAINE\PRILOCAINE
  15. HYRDOCODONE-ACETAMINOPHEN [Concomitant]
  16. EXEMESTANE. [Concomitant]
     Active Substance: EXEMESTANE

REACTIONS (8)
  - Left ventricular dysfunction [None]
  - Fatigue [None]
  - Cardiomyopathy [None]
  - Dyspnoea exertional [None]
  - Activities of daily living impaired [None]
  - Dizziness [None]
  - Blood pressure increased [None]
  - Toxicity to various agents [None]

NARRATIVE: CASE EVENT DATE: 20150722
